FAERS Safety Report 8854724 (Version 1)
Quarter: 2012Q4

REPORT INFORMATION
  Report Type: Report from Study
  Country: JP (occurrence: JP)
  Receive Date: 20121023
  Receipt Date: 20121023
  Transmission Date: 20130627
  Serious: Yes (Congenital Anomaly)
  Sender: FDA-Public Use
  Company Number: JP-009507513-1210JPN007431

PATIENT
  Sex: Male
  Weight: 2.97 kg

DRUGS (7)
  1. GANIREST [Suspect]
     Indication: PREVENTION OF PREMATURE OVULATION
     Dosage: 0.25 mg, UNK, 1 Day
     Dates: start: 20110301, end: 20110302
  2. FOLYRMON P [Concomitant]
     Indication: IN VITRO FERTILISATION
     Dosage: 150 (under 1000unit)
     Dates: start: 20110223, end: 20110223
  3. MENOTROPINS [Concomitant]
     Indication: IN VITRO FERTILISATION
     Dosage: 150 (Under 1000 units)
     Dates: start: 20110223, end: 20110223
  4. FOLLITROPIN ALFA [Concomitant]
     Indication: IN VITRO FERTILISATION
     Dosage: 150, Under1000 units
     Dates: start: 20110224, end: 20110227
  5. OZEX (TOSUFLOXACIN TOSYLATE) [Concomitant]
     Indication: IN VITRO FERTILISATION
     Dosage: 150 mg, UNK
     Dates: start: 20110305, end: 20110307
  6. VOLTAREN [Concomitant]
     Indication: IN VITRO FERTILISATION
     Dosage: 50 mg, UNK
     Dates: start: 20110305, end: 20110305
  7. GONADOTROPIN, CHORIONIC [Concomitant]
     Indication: OVULATION INDUCTION
     Dosage: 5 thousand-mill ion unit
     Dates: start: 20110303, end: 20110303

REACTIONS (2)
  - Trisomy 21 [Unknown]
  - Maternal drugs affecting foetus [None]
